FAERS Safety Report 20490920 (Version 6)
Quarter: 2025Q3

REPORT INFORMATION
  Report Type: Spontaneous
  Country: US (occurrence: US)
  Receive Date: 20220218
  Receipt Date: 20250709
  Transmission Date: 20251020
  Serious: Yes (Other)
  Sender: AMGEN
  Company Number: US-AMGEN-USASP2022029052

PATIENT
  Age: 55 Year
  Sex: Female

DRUGS (2)
  1. OTEZLA [Suspect]
     Active Substance: APREMILAST
     Indication: Psoriasis
     Dosage: UNK, BID
     Route: 065
     Dates: start: 2014
  2. OTEZLA [Suspect]
     Active Substance: APREMILAST
     Route: 065

REACTIONS (19)
  - Breast cancer [Unknown]
  - Suicidal ideation [Unknown]
  - Depression [Unknown]
  - Drug ineffective [Unknown]
  - Abdominal pain upper [Unknown]
  - Corneal abrasion [Unknown]
  - Panic reaction [Unknown]
  - Hot flush [Not Recovered/Not Resolved]
  - Psoriasis [Unknown]
  - Dehydration [Unknown]
  - Memory impairment [Unknown]
  - Unevaluable event [Unknown]
  - Therapy interrupted [Unknown]
  - Mental disorder [Unknown]
  - Illness [Unknown]
  - Headache [Unknown]
  - Nausea [Unknown]
  - Vomiting [Unknown]
  - Weight decreased [Unknown]

NARRATIVE: CASE EVENT DATE: 20220217
